FAERS Safety Report 6151202-8 (Version None)
Quarter: 2009Q2

REPORT INFORMATION
  Report Type: 
  Country: None (occurrence: None)
  Receive Date: 20090408
  Receipt Date: 20090408
  Transmission Date: 20091009
  Serious: Yes (Other)
  Sender: FDA-Public Use
  Company Number: None

PATIENT
  Age: 22 Year
  Sex: Female
  Weight: 86.637 kg

DRUGS (1)
  1. MIRENA [Suspect]
     Indication: PROPHYLAXIS
     Dosage: ONE UNIT ONE TIME INSERTION  ENDOCERVICA
     Route: 005
     Dates: start: 20080315, end: 20090407

REACTIONS (5)
  - FATIGUE [None]
  - HAEMORRHAGE [None]
  - MUSCULOSKELETAL STIFFNESS [None]
  - PAIN [None]
  - PYREXIA [None]
